FAERS Safety Report 7747572-7 (Version None)
Quarter: 2011Q3

REPORT INFORMATION
  Report Type: 
  Country: None (occurrence: None)
  Receive Date: 20110913
  Receipt Date: 20110831
  Transmission Date: 20111222
  Serious: No
  Sender: FDA-Public Use
  Company Number: CA-ELI_LILLY_AND_COMPANY-CA201108009430

PATIENT
  Sex: Female

DRUGS (9)
  1. ZYPREXA [Suspect]
     Dosage: 7.5 MG, QD
  2. RISPERDAL [Concomitant]
  3. ZYPREXA [Suspect]
     Indication: SCHIZOPHRENIA
     Dosage: 10 MG, QD
     Dates: start: 19990622
  4. ZYPREXA [Suspect]
     Dosage: 2.5 MG, EACH EVENING
  5. CLONAZEPAM [Concomitant]
  6. SEROQUEL [Concomitant]
  7. PAXIL [Concomitant]
  8. VALPROATE SODIUM [Concomitant]
  9. LORAZEPAM [Concomitant]

REACTIONS (8)
  - UTERINE HAEMORRHAGE [None]
  - HYPERLIPIDAEMIA [None]
  - HYPERCHOLESTEROLAEMIA [None]
  - DIABETES MELLITUS [None]
  - NEUROPATHY PERIPHERAL [None]
  - BRONCHITIS [None]
  - HYPERGLYCAEMIA [None]
  - HYPERTENSION [None]
